FAERS Safety Report 10448473 (Version 1)
Quarter: 2014Q3

REPORT INFORMATION
  Report Type: Spontaneous
  Country: US (occurrence: US)
  Receive Date: 20140911
  Receipt Date: 20140911
  Transmission Date: 20150326
  Serious: Yes (Death, Hospitalization, Other)
  Sender: FDA-Public Use
  Company Number: US-B.I. PHARMACEUTICALS,INC./RIDGEFIELD-2014-BI-42611BP

PATIENT
  Age: 71 Year
  Sex: Female
  Weight: 39.92 kg

DRUGS (1)
  1. PRADAXA [Suspect]
     Active Substance: DABIGATRAN ETEXILATE MESYLATE
     Indication: PRODUCT USED FOR UNKNOWN INDICATION
     Route: 065

REACTIONS (8)
  - Death [Fatal]
  - Craniocerebral injury [Unknown]
  - Pelvic fracture [Unknown]
  - Hip fracture [Unknown]
  - Pericardial haemorrhage [Unknown]
  - Platelet count decreased [Unknown]
  - Fall [Recovered/Resolved]
  - Wrist fracture [Unknown]

NARRATIVE: CASE EVENT DATE: 2012
